FAERS Safety Report 7954983-3 (Version None)
Quarter: 2011Q4

REPORT INFORMATION
  Report Type: 
  Country: None (occurrence: None)
  Receive Date: 20111202
  Receipt Date: 20111123
  Transmission Date: 20120403
  Serious: Yes (Other)
  Sender: FDA-Public Use
  Company Number: PHHY2011US102656

PATIENT
  Age: 32 Year
  Sex: Female

DRUGS (4)
  1. DIAZEPAM [Interacting]
     Dosage: 140 MG, UNK
     Route: 040
  2. DIAZEPAM [Interacting]
     Dosage: 5 MG/H, UNK
  3. DIAZEPAM [Interacting]
     Dosage: 2 MEQ/KG, UNK
     Route: 040
  4. HYDROXYCHLOROQUINE [Suspect]
     Dosage: 18 G, UNK

REACTIONS (8)
  - TOXICITY TO VARIOUS AGENTS [None]
  - HYPOTENSION [None]
  - ELECTROCARDIOGRAM QT PROLONGED [None]
  - DRUG INTERACTION [None]
  - INTENTIONAL OVERDOSE [None]
  - SUICIDE ATTEMPT [None]
  - HYPOKALAEMIA [None]
  - ELECTROCARDIOGRAM QRS COMPLEX PROLONGED [None]
